FAERS Safety Report 19765985 (Version 1)
Quarter: 2021Q3

REPORT INFORMATION
  Report Type: Spontaneous
  Country: US (occurrence: US)
  Receive Date: 20210831
  Receipt Date: 20210831
  Transmission Date: 20211014
  Serious: No
  Sender: FDA-Public Use
  Company Number: US-ELI_LILLY_AND_COMPANY-US202108011321

PATIENT
  Sex: Male

DRUGS (2)
  1. TADALAFIL. [Suspect]
     Active Substance: TADALAFIL
     Indication: ERECTILE DYSFUNCTION
     Dosage: 20 MG, DAILY (ONCE DAILY AS NEEDED)
     Route: 065
     Dates: start: 20210811, end: 20210815
  2. TADALAFIL. [Suspect]
     Active Substance: TADALAFIL
     Dosage: UNK UNK, PRN (AS NEEDED DOSING)
     Route: 065
     Dates: start: 20210818

REACTIONS (3)
  - Psychiatric symptom [Unknown]
  - Back pain [Unknown]
  - Drug ineffective [Unknown]

NARRATIVE: CASE EVENT DATE: 20210813
